FAERS Safety Report 16259755 (Version 1)
Quarter: 2019Q2

REPORT INFORMATION
  Report Type: Report from Study
  Country: None (occurrence: DE)
  Receive Date: 20190501
  Receipt Date: 20190501
  Transmission Date: 20190711
  Serious: Yes (Death, Hospitalization)
  Sender: FDA-Public Use
  Company Number: DE-ABBVIE-19S-062-2764334-00

PATIENT
  Sex: Male

DRUGS (1)
  1. DUODOPA [Suspect]
     Active Substance: CARBIDOPA\LEVODOPA
     Indication: PARKINSON^S DISEASE
     Dosage: MD 5 ML; CRD 3.2 ML/HR; ED 1.2 ML 20 MG/ML 5 MG/ML
     Route: 050
     Dates: start: 20141210

REACTIONS (2)
  - Pneumonia [Fatal]
  - Constipation [Unknown]

NARRATIVE: CASE EVENT DATE: 2019
